FAERS Safety Report 13823626 (Version 1)
Quarter: 2017Q3

REPORT INFORMATION
  Report Type: Spontaneous
  Country: US (occurrence: US)
  Receive Date: 20170802
  Receipt Date: 20170802
  Transmission Date: 20171127
  Serious: No
  Sender: FDA-Public Use
  Company Number: US-ASTRAZENECA-2017SE75699

PATIENT
  Sex: Female

DRUGS (2)
  1. LORAZEPAM. [Concomitant]
     Active Substance: LORAZEPAM
  2. SEROQUEL [Suspect]
     Active Substance: QUETIAPINE FUMARATE
     Route: 048

REACTIONS (4)
  - Anxiety [Unknown]
  - Panic attack [Unknown]
  - Depression [Unknown]
  - Drug ineffective [Unknown]
